FAERS Safety Report 7050107-8 (Version None)
Quarter: 2010Q4

REPORT INFORMATION
  Report Type: 
  Country: None (occurrence: None)
  Receive Date: 20101018
  Receipt Date: 20101013
  Transmission Date: 20110411
  Serious: Yes (Other)
  Sender: FDA-Public Use
  Company Number: FR-BRISTOL-MYERS SQUIBB COMPANY-15335698

PATIENT
  Age: 48 Year
  Sex: Male

DRUGS (4)
  1. REYATAZ [Suspect]
     Indication: HIV INFECTION
     Route: 048
     Dates: start: 20091124, end: 20100511
  2. NORVIR [Suspect]
     Indication: HIV INFECTION
     Dosage: 24-NOV-2010 TO 11-MAY-2010  RESTARTED:14SEP10
     Dates: start: 20091124, end: 20100511
  3. TRUVADA [Suspect]
     Indication: HIV INFECTION
     Dosage: 24-NOV-2010 TO 11-MAY-2010  RESTARTED:14SEP10,1 DF:1 INTAKE
     Route: 048
     Dates: start: 20091124, end: 20100511
  4. BACTRIM [Concomitant]
     Indication: PROPHYLAXIS
     Dosage: RESTARTED:14SEP10
     Route: 048

REACTIONS (1)
  - RENAL COLIC [None]
